FAERS Safety Report 13736539 (Version 2)
Quarter: 2017Q3

REPORT INFORMATION
  Report Type: Spontaneous
  Country: US (occurrence: US)
  Receive Date: 20170710
  Receipt Date: 20170713
  Transmission Date: 20171127
  Serious: Yes (Other)
  Sender: FDA-Public Use
  Company Number: US-GLAXOSMITHKLINE-US2017105313

PATIENT
  Sex: Female

DRUGS (2)
  1. EXCEDRIN [Suspect]
     Active Substance: ACETAMINOPHEN\ASPIRIN\CAFFEINE
     Indication: HEADACHE
     Dosage: UNK
  2. ASPIRIN. [Suspect]
     Active Substance: ASPIRIN
     Indication: PRODUCT USED FOR UNKNOWN INDICATION
     Dosage: UNK

REACTIONS (8)
  - Contraindicated product administered [Unknown]
  - Ulcer haemorrhage [Unknown]
  - Drug administered to patient of inappropriate age [Unknown]
  - Gastritis erosive [Unknown]
  - Abdominal pain upper [Unknown]
  - Gastric cancer [Unknown]
  - Gastric ulcer [Unknown]
  - Drug dependence [Unknown]
